FAERS Safety Report 5374562-4 (Version None)
Quarter: 2007Q2

REPORT INFORMATION
  Report Type: 
  Country: None (occurrence: None)
  Receive Date: 20070629
  Receipt Date: 20070622
  Transmission Date: 20071010
  Serious: Yes (Other)
  Sender: FDA-Public Use
  Company Number: CA-BRISTOL-MYERS SQUIBB COMPANY-13822556

PATIENT
  Age: 24 Year
  Sex: Female

DRUGS (7)
  1. IRBESARTAN [Suspect]
  2. HYDROCHLOROTHIAZIDE [Concomitant]
  3. CALCIUM SUPPLEMENT [Concomitant]
  4. IRON SUPPLEMENT [Concomitant]
  5. EPOGEN [Concomitant]
  6. LEVOTHYROXINE SODIUM [Concomitant]
  7. INSULIN [Concomitant]

REACTIONS (3)
  - CONGENITAL CENTRAL NERVOUS SYSTEM ANOMALY [None]
  - PREGNANCY [None]
  - RENAL APLASIA [None]
